FAERS Safety Report 22599961 (Version 2)
Quarter: 2023Q2

REPORT INFORMATION
  Report Type: Report from Study
  Country: SG (occurrence: None)
  Receive Date: 20230614
  Receipt Date: 20230623
  Transmission Date: 20230722
  Serious: Yes (Other)
  Sender: FDA-Public Use
  Company Number: 2023A132683

PATIENT
  Sex: Male
  Weight: 67 kg

DRUGS (1)
  1. TAGRISSO [Suspect]
     Active Substance: OSIMERTINIB
     Route: 048
     Dates: start: 20220901, end: 20230210

REACTIONS (2)
  - Disease progression [Unknown]
  - Drug ineffective [Unknown]
